FAERS Safety Report 19957999 (Version 1)
Quarter: 2021Q4

REPORT INFORMATION
  Report Type: Spontaneous
  Country: US (occurrence: US)
  Receive Date: 20211015
  Receipt Date: 20211015
  Transmission Date: 20220303
  Serious: Yes (Hospitalization)
  Sender: FDA-Public Use
  Company Number: US-AVET LIFESCIENCES LTD-2021-AVET-000034

PATIENT
  Age: 80 Year
  Sex: Male

DRUGS (6)
  1. DOXYCYCLINE HYCLATE [Suspect]
     Active Substance: DOXYCYCLINE HYCLATE
     Indication: Skin infection
     Dosage: 100 MILLIGRAM, BID
  2. ASPIRIN [Concomitant]
     Active Substance: ASPIRIN
  3. NEBIVOLOL [Concomitant]
     Active Substance: NEBIVOLOL
  4. FENOFIBRATE [Concomitant]
     Active Substance: FENOFIBRATE
  5. LOVASTATIN [Concomitant]
     Active Substance: LOVASTATIN
  6. TAMSULOSIN [Concomitant]
     Active Substance: TAMSULOSIN

REACTIONS (1)
  - Factor VIII deficiency [Recovering/Resolving]
